FAERS Safety Report 7589698-7 (Version None)
Quarter: 2011Q3

REPORT INFORMATION
  Report Type: 
  Country: None (occurrence: None)
  Receive Date: 20110705
  Receipt Date: 20110701
  Transmission Date: 20111222
  Serious: Yes (Death)
  Sender: FDA-Public Use
  Company Number: AU-ABBOTT-11P-008-0835559-00

PATIENT
  Age: 1 Year

DRUGS (2)
  1. OXYGEN [Suspect]
     Indication: INDUCTION OF ANAESTHESIA
  2. SEVOFLURANE [Suspect]
     Indication: INDUCTION OF ANAESTHESIA

REACTIONS (1)
  - CARDIAC ARREST [None]
